FAERS Safety Report 8275437-3 (Version None)
Quarter: 2012Q2

REPORT INFORMATION
  Report Type: 
  Country: None (occurrence: None)
  Receive Date: 20120411
  Receipt Date: 20120403
  Transmission Date: 20120825
  Serious: Yes (Hospitalization)
  Sender: FDA-Public Use
  Company Number: FR-BAXTER-2012BAX002044

PATIENT
  Sex: Male

DRUGS (9)
  1. CELLCEPT [Suspect]
     Indication: MULTIPLE SCLEROSIS
     Dosage: 2 UNIT-FORMS
     Route: 048
     Dates: start: 20070701, end: 20090701
  2. CLONAZEPAM [Concomitant]
     Route: 065
  3. TRILEPTAL [Concomitant]
     Route: 065
  4. CELLCEPT [Suspect]
     Dosage: 2 UNIT-FORMS
     Route: 048
     Dates: start: 20091001
  5. LIORESAL [Concomitant]
     Route: 065
  6. CYCLOPHOSPHAMIDE [Suspect]
     Indication: MULTIPLE SCLEROSIS
     Route: 048
     Dates: start: 20090701, end: 20091001
  7. REBIF [Suspect]
     Indication: MULTIPLE SCLEROSIS
     Route: 058
     Dates: start: 20030801, end: 20060501
  8. ALFUZOSIN HCL [Concomitant]
     Route: 065
  9. ELSEP [Suspect]
     Indication: MULTIPLE SCLEROSIS
     Route: 042
     Dates: start: 20060501, end: 20070701

REACTIONS (1)
  - RENAL CANCER [None]
